FAERS Safety Report 4993376-8 (Version None)
Quarter: 2006Q2

REPORT INFORMATION
  Report Type: 
  Country: None (occurrence: None)
  Receive Date: 20060505
  Receipt Date: 20060425
  Transmission Date: 20061013
  Serious: Yes (Death, Hospitalization)
  Sender: FDA-Public Use
  Company Number: US-JNJFOC-20060400143

PATIENT
  Sex: Female
  Weight: 96.16 kg

DRUGS (20)
  1. REMICADE [Suspect]
  2. REMICADE [Suspect]
  3. REMICADE [Suspect]
     Indication: RHEUMATOID ARTHRITIS
  4. PREDNISONE TAB [Concomitant]
     Indication: RHEUMATOID ARTHRITIS
     Dosage: DOSE 10-20MG
  5. LUNESTA [Concomitant]
  6. MOBIC [Concomitant]
  7. VICODIN [Concomitant]
  8. VICODIN [Concomitant]
     Indication: PAIN
  9. FOLIC ACID [Concomitant]
  10. METHOTREXATE [Concomitant]
     Route: 058
  11. M.V.I. [Concomitant]
  12. M.V.I. [Concomitant]
  13. M.V.I. [Concomitant]
  14. M.V.I. [Concomitant]
  15. M.V.I. [Concomitant]
  16. M.V.I. [Concomitant]
  17. M.V.I. [Concomitant]
  18. M.V.I. [Concomitant]
  19. CALCIUM GLUCONATE [Concomitant]
  20. IRON [Concomitant]

REACTIONS (2)
  - PNEUMOCYSTIS JIROVECI PNEUMONIA [None]
  - RESPIRATORY FAILURE [None]
